FAERS Safety Report 10643362 (Version 1)
Quarter: 2014Q4

REPORT INFORMATION
  Report Type: Spontaneous
  Country: US (occurrence: None)
  Receive Date: 20141121
  Receipt Date: 20141121
  Transmission Date: 20150529
  Serious: No
  Sender: FDA-Public Use
  Company Number: 163-10004-14085519

PATIENT
  Age: 68 Year
  Sex: Female
  Weight: 88.45 kg

DRUGS (18)
  1. LEVOTHRYOXINE [Concomitant]
     Active Substance: LEVOTHYROXINE
  2. IRON [Concomitant]
     Active Substance: IRON
  3. OCUVITE [Concomitant]
     Active Substance: VITAMINS
  4. PEPCID COMPLETE (FAMOTIDINE) [Concomitant]
  5. POTASSIUM CHLORIDE. [Concomitant]
     Active Substance: POTASSIUM CHLORIDE
  6. PREDNISONE. [Concomitant]
     Active Substance: PREDNISONE
  7. OTEZLA [Suspect]
     Active Substance: APREMILAST
     Indication: PSORIATIC ARTHROPATHY
     Route: 048
     Dates: start: 20140810, end: 20140826
  8. PRAVASTATIN [Concomitant]
     Active Substance: PRAVASTATIN\PRAVASTATIN SODIUM
  9. LOSARTAN [Concomitant]
     Active Substance: LOSARTAN
  10. METFORMIN [Concomitant]
     Active Substance: METFORMIN HYDROCHLORIDE
  11. VITAMIN D (ERGOCALCIFEROL) [Concomitant]
     Active Substance: ERGOCALCIFEROL
  12. STOOL SOFTENER (DOCUSATE SODIUM) [Concomitant]
     Active Substance: DOCUSATE SODIUM
  13. PROTONIX [Concomitant]
     Active Substance: PANTOPRAZOLE SODIUM
  14. VICTOZA [Concomitant]
     Active Substance: LIRAGLUTIDE
  15. NOVOLOG [Concomitant]
     Active Substance: INSULIN ASPART
  16. CARAFATE [Concomitant]
     Active Substance: SUCRALFATE
  17. POTASSIUM [Concomitant]
     Active Substance: POTASSIUM
  18. FUROSEMIDE. [Concomitant]
     Active Substance: FUROSEMIDE

REACTIONS (3)
  - Nasal congestion [None]
  - Cough [None]
  - Respiratory tract congestion [None]

NARRATIVE: CASE EVENT DATE: 20140816
